FAERS Safety Report 8873904 (Version 2)
Quarter: 2012Q4

REPORT INFORMATION
  Report Type: 
  Country: US (occurrence: US)
  Receive Date: 20121030
  Receipt Date: 20121109
  Transmission Date: 20130627
  Serious: Yes (Hospitalization, Other)
  Sender: FDA-Public Use
  Company Number: PHEH2012US020974

PATIENT
  Sex: Female

DRUGS (1)
  1. AFINITOR [Suspect]
     Indication: BREAST CANCER
     Dosage: 10 mg, QD
     Route: 048

REACTIONS (6)
  - Oesophageal stenosis [Unknown]
  - Concomitant disease progression [Unknown]
  - Aphagia [Unknown]
  - Obstruction [Unknown]
  - Metastatic neoplasm [Unknown]
  - Lymphadenopathy [Unknown]
